FAERS Safety Report 14352803 (Version 2)
Quarter: 2018Q1

REPORT INFORMATION
  Report Type: Spontaneous
  Country: US (occurrence: US)
  Receive Date: 20180104
  Receipt Date: 20180213
  Transmission Date: 20180509
  Serious: No
  Sender: FDA-Public Use
  Company Number: US-PFIZER INC-2017551210

PATIENT
  Age: 84 Year
  Sex: Male

DRUGS (2)
  1. MUCINEX FAST-MAX SEVERE CONGESTION AND COUGH [Interacting]
     Active Substance: DEXTROMETHORPHAN HYDROBROMIDE\GUAIFENESIN\PHENYLEPHRINE HYDROCHLORIDE
     Indication: INCREASED UPPER AIRWAY SECRETION
     Dosage: 20 ML, UNK, INTERMITTENTLY
     Route: 048
  2. ADVIL PM [Suspect]
     Active Substance: DIPHENHYDRAMINE CITRATE\IBUPROFEN
     Indication: SLEEP DISORDER
     Dosage: 2 CAPLETS INTERMITTENTLY

REACTIONS (4)
  - Abnormal dreams [Not Recovered/Not Resolved]
  - Drug interaction [Unknown]
  - Intentional product misuse [Unknown]
  - Somnolence [Unknown]
